FAERS Safety Report 5096798-2 (Version None)
Quarter: 2006Q3

REPORT INFORMATION
  Report Type: 
  Country: None (occurrence: None)
  Receive Date: 20060831
  Receipt Date: 20060821
  Transmission Date: 20061208
  Serious: Yes (Hospitalization)
  Sender: FDA-Public Use
  Company Number: 2006101736

PATIENT
  Age: 67 Year
  Sex: Female
  Weight: 76 kg

DRUGS (11)
  1. DOXAZOSIN (DOXAZOSIN) [Suspect]
     Indication: BLOOD PRESSURE
     Dosage: 4 MG (4 MG, DAILY), ORAL
     Route: 048
     Dates: start: 20060103, end: 20060501
  2. ASPIRIN [Concomitant]
  3. ATORVASTATIN CALCIUM [Concomitant]
  4. BENDROFLUMETHIAZIDE (BENDROFLUMETHIAZIDE) [Concomitant]
  5. BUDESONIDE [Concomitant]
  6. FLUTICASONE PROPIONATE [Concomitant]
  7. FLUTICASONE PROPIONATE [Concomitant]
  8. LEVOTHYROXINE SODIUM [Concomitant]
  9. PERINDOPRIL TERT-BUTYLAMINE (PERINDOPRIL ERBUTAMINE) [Concomitant]
  10. SALBUTAMOL (SALBUTAMOL) [Concomitant]
  11. SALMETEROL (SALMETEROL) [Concomitant]

REACTIONS (2)
  - ATRIAL FIBRILLATION [None]
  - DYSPNOEA [None]
